FAERS Safety Report 18247858 (Version 1)
Quarter: 2020Q3

REPORT INFORMATION
  Report Type: Spontaneous
  Country: GB (occurrence: GB)
  Receive Date: 20200909
  Receipt Date: 20200909
  Transmission Date: 20201103
  Serious: Yes (Other)
  Sender: FDA-Public Use
  Company Number: GB-SA-2020SA243491

PATIENT

DRUGS (2)
  1. DOCETAXEL. [Suspect]
     Active Substance: DOCETAXEL
     Indication: PROSTATE CANCER
     Dosage: 75 MG/M2, QCY
     Route: 042
     Dates: start: 20170503, end: 20170503
  2. DOCETAXEL. [Suspect]
     Active Substance: DOCETAXEL
     Dosage: 75 MG/M2, QCY
     Route: 042
     Dates: start: 20170816, end: 20170816

REACTIONS (6)
  - Nail discolouration [Unknown]
  - Dry mouth [Recovered/Resolved]
  - Onychoclasis [Unknown]
  - Fatigue [Unknown]
  - Deep vein thrombosis [Unknown]
  - Neuropathy peripheral [Unknown]

NARRATIVE: CASE EVENT DATE: 2017
